FAERS Safety Report 7514758-6 (Version None)
Quarter: 2011Q2

REPORT INFORMATION
  Report Type: 
  Country: None (occurrence: None)
  Receive Date: 20110601
  Receipt Date: 20110524
  Transmission Date: 20111010
  Serious: Yes (Other)
  Sender: FDA-Public Use
  Company Number: US-US-EMD SERONO, INC.-7050793

PATIENT
  Sex: Female

DRUGS (4)
  1. REBIF [Suspect]
     Indication: MULTIPLE SCLEROSIS
     Route: 058
     Dates: start: 20020101
  2. TYLENOL PM [Concomitant]
     Indication: PAIN
  3. MIRAPEX [Concomitant]
     Indication: MUSCLE SPASMS
  4. BACLOFEN [Concomitant]
     Indication: MUSCLE SPASTICITY

REACTIONS (3)
  - INTERVERTEBRAL DISC SPACE NARROWING [None]
  - INTERVERTEBRAL DISC PROTRUSION [None]
  - FALL [None]
